FAERS Safety Report 7994992-1 (Version None)
Quarter: 2011Q4

REPORT INFORMATION
  Report Type: 
  Country: None (occurrence: None)
  Receive Date: 20111220
  Receipt Date: 20111210
  Transmission Date: 20120403
  Serious: Yes (Hospitalization, Other)
  Sender: FDA-Public Use
  Company Number: US-JNJFOC-20090902187

PATIENT
  Sex: Female
  Weight: 60.3 kg

DRUGS (58)
  1. RITUXAN [Suspect]
     Dosage: 820 MG
     Route: 042
     Dates: start: 20091012
  2. LEUCOVORIN CALCIUM [Suspect]
     Indication: BURKITT'S LYMPHOMA STAGE IV
     Route: 065
  3. BENADRYL [Concomitant]
     Indication: SLEEP DISORDER
     Dosage: 25-50MG
     Route: 065
  4. SODIUM CHLORIDE [Concomitant]
     Route: 042
  5. RITUXAN [Suspect]
     Route: 042
     Dates: start: 20091130
  6. CYCLOPHOSPHAMIDE [Suspect]
     Dosage: 328MG
     Route: 065
     Dates: start: 20091014, end: 20091017
  7. VINCRISTINE [Suspect]
     Route: 042
  8. METHOTREXATE [Suspect]
     Indication: BURKITT'S LYMPHOMA STAGE IV
     Dosage: 4918MG
     Route: 042
     Dates: start: 20091022
  9. METHOTREXATE [Suspect]
     Route: 042
     Dates: start: 20090826
  10. IFOSFAMIDE [Suspect]
     Indication: BURKITT'S LYMPHOMA STAGE IV
     Route: 065
     Dates: end: 20091130
  11. IFOSFAMIDE [Suspect]
     Route: 065
  12. IFOSFAMIDE [Suspect]
     Route: 065
  13. IFOSFAMIDE [Suspect]
     Route: 065
     Dates: start: 20090814
  14. ETOPOSIDE [Suspect]
     Route: 065
     Dates: end: 20091130
  15. FILGRASTIM [Suspect]
     Route: 065
  16. FILGRASTIM [Suspect]
     Route: 065
  17. COLACE [Concomitant]
     Route: 065
  18. COLACE [Concomitant]
     Route: 065
  19. RITUXAN [Suspect]
     Indication: BURKITT'S LYMPHOMA STAGE IV
     Dosage: 825 MG
     Route: 042
     Dates: start: 20090814
  20. CYTARABINE [Suspect]
     Route: 037
  21. LEUCOVORIN CALCIUM [Suspect]
     Route: 065
     Dates: start: 20090814
  22. FILGRASTIM [Suspect]
     Indication: BURKITT'S LYMPHOMA STAGE IV
     Route: 065
     Dates: end: 20091130
  23. NYSTATIN [Concomitant]
     Dosage: 500,000 SWISH AND SWALLOW
     Route: 065
  24. DEXTROSE [Concomitant]
     Route: 065
  25. DOXORUBICIN HCL [Suspect]
     Indication: BURKITT'S LYMPHOMA STAGE IV
     Dosage: 66 MG
     Route: 042
     Dates: start: 20090814
  26. ETOPOSIDE [Suspect]
     Indication: BURKITT'S LYMPHOMA STAGE IV
     Route: 065
  27. ACETAMINOPHEN [Concomitant]
     Indication: PYREXIA
     Route: 048
  28. PIPERACILLIN [Concomitant]
     Route: 065
  29. DOXORUBICIN HCL [Suspect]
     Route: 042
     Dates: end: 20091130
  30. RITUXAN [Suspect]
     Dosage: 825 MG
     Route: 042
     Dates: start: 20090824
  31. CYCLOPHOSPHAMIDE [Suspect]
     Indication: BURKITT'S LYMPHOMA STAGE IV
     Dosage: 1312MG
     Route: 065
     Dates: start: 20091013
  32. METHOTREXATE [Suspect]
     Route: 042
     Dates: end: 20091130
  33. ETOPOSIDE [Suspect]
     Route: 065
  34. LISINOPRIL [Concomitant]
     Route: 065
  35. TAZOBACTAM [Concomitant]
     Route: 065
  36. DOXORUBICIN HCL [Suspect]
     Route: 042
  37. CYCLOPHOSPHAMIDE [Suspect]
     Route: 065
     Dates: start: 20090816, end: 20090819
  38. VINCRISTINE [Suspect]
     Indication: BURKITT'S LYMPHOMA STAGE IV
     Dosage: 2MG
     Route: 042
     Dates: start: 20091013
  39. VINCRISTINE [Suspect]
     Dosage: 2MG
     Route: 042
     Dates: start: 20090814
  40. VINCRISTINE [Suspect]
     Route: 042
     Dates: end: 20091130
  41. CYTARABINE [Suspect]
     Indication: BURKITT'S LYMPHOMA STAGE IV
     Route: 037
     Dates: end: 20091130
  42. CYTARABINE [Suspect]
     Route: 037
  43. ETOPOSIDE [Suspect]
     Route: 065
     Dates: start: 20090814
  44. FILGRASTIM [Suspect]
     Route: 065
     Dates: start: 20090814
  45. ALLOPURINOL [Concomitant]
     Route: 065
  46. DOXORUBICIN HCL [Suspect]
     Dosage: 49MG, CYCLE 3
     Route: 042
     Dates: start: 20091013
  47. RITUXAN [Suspect]
     Dosage: 820 MG
     Route: 042
     Dates: start: 20091020
  48. CYCLOPHOSPHAMIDE [Suspect]
     Dosage: 1320MG
     Route: 065
     Dates: start: 20090814
  49. CYCLOPHOSPHAMIDE [Suspect]
     Route: 065
     Dates: end: 20091130
  50. CYTARABINE [Suspect]
     Route: 037
     Dates: start: 20090815
  51. LEUCOVORIN CALCIUM [Suspect]
     Route: 065
  52. ACYCLOVIR [Concomitant]
     Route: 065
  53. FLUCONAZOLE [Concomitant]
     Route: 065
  54. SODIUM BICARBONATE [Concomitant]
     Route: 048
  55. VANCOMYCIN HYCHLORIDE [Concomitant]
     Route: 065
  56. METHOTREXATE [Suspect]
     Dosage: 500 MG
     Route: 042
     Dates: start: 20090814
  57. LEUCOVORIN CALCIUM [Suspect]
     Route: 065
     Dates: end: 20091130
  58. DAPSONE [Concomitant]
     Route: 065

REACTIONS (12)
  - HYPOCALCAEMIA [None]
  - TRANSAMINASES INCREASED [None]
  - LEUKOPENIA [None]
  - ORAL INFECTION [None]
  - THROMBOCYTOPENIA [None]
  - ASPARTATE AMINOTRANSFERASE INCREASED [None]
  - CANDIDIASIS [None]
  - LYMPHOPENIA [None]
  - FEBRILE NEUTROPENIA [None]
  - LYMPHOCYTE COUNT [None]
  - NEUTROPHIL COUNT [None]
  - STOMATITIS [None]
